FAERS Safety Report 7952961-1 (Version None)
Quarter: 2011Q4

REPORT INFORMATION
  Report Type: 
  Country: None (occurrence: None)
  Receive Date: 20111201
  Receipt Date: 20111121
  Transmission Date: 20120403
  Serious: Yes (Hospitalization, Other)
  Sender: FDA-Public Use
  Company Number: PHEH2011US010292

PATIENT
  Sex: Male

DRUGS (1)
  1. SANDOSTATIN LAR [Suspect]
     Indication: CARCINOID TUMOUR
     Dates: start: 20101220

REACTIONS (8)
  - NEOPLASM PROGRESSION [None]
  - WEIGHT DECREASED [None]
  - ASTHENIA [None]
  - METASTASIS [None]
  - NEOPLASM MALIGNANT [None]
  - ABDOMINAL DISCOMFORT [None]
  - ABDOMINAL PAIN [None]
  - FATIGUE [None]
